FAERS Safety Report 23816145 (Version 2)
Quarter: 2024Q2

REPORT INFORMATION
  Report Type: Spontaneous
  Country: CN (occurrence: CN)
  Receive Date: 20240503
  Receipt Date: 20240522
  Transmission Date: 20240716
  Serious: Yes (Death, Hospitalization, Other)
  Sender: FDA-Public Use
  Company Number: CN-009507513-2405CHN000492

PATIENT
  Age: 69 Year
  Sex: Male
  Weight: 59 kg

DRUGS (3)
  1. KEYTRUDA [Suspect]
     Active Substance: PEMBROLIZUMAB
     Indication: Non-small cell lung cancer
     Dosage: 200 MG, Q3W
     Dates: start: 20230705, end: 20230726
  2. YUN NAN BAI YAO [ACONITUM KUSNEZOFFII ROOT TUBER;ACONITUM SPP. ROOT TU [Concomitant]
     Indication: Haemoptysis
     Dosage: 1 PILLULE, TID
     Route: 048
     Dates: start: 20230703, end: 20230726
  3. DICLOFENAC SODIUM AND CODEINE PHOSPHATE [Concomitant]
     Indication: Cancer pain
     Dosage: 1 TABLET, TID
     Route: 048
     Dates: start: 20230703, end: 20230726

REACTIONS (6)
  - Malignant neoplasm progression [Fatal]
  - Cardiac tamponade [Fatal]
  - Pneumonia [Fatal]
  - Immune-mediated lung disease [Not Recovered/Not Resolved]
  - Pericardial effusion [Unknown]
  - Hepatic cyst [Unknown]

NARRATIVE: CASE EVENT DATE: 20230701
